FAERS Safety Report 25365691 (Version 2)
Quarter: 2025Q4

REPORT INFORMATION
  Report Type: Report from Study
  Country: CA (occurrence: CA)
  Receive Date: 20250527
  Receipt Date: 20251111
  Transmission Date: 20260118
  Serious: Yes (Other)
  Sender: Alvotech
  Company Number: CA-JAMP PHARMA CORPORATION-2024-JAM-CA-00197

PATIENT
  Age: 50 Year
  Sex: Male

DRUGS (2)
  1. SIMLANDI [Suspect]
     Active Substance: ADALIMUMAB-RYVK
     Indication: Crohn^s disease
     Dosage: 80 MILLIGRAM, EVERY 2 WEEKS
     Route: 058
  2. SIMLANDI [Suspect]
     Active Substance: ADALIMUMAB-RYVK
     Indication: Crohn^s disease
     Dosage: 40 MILLIGRAM, UNK
     Route: 065

REACTIONS (6)
  - Crohn^s disease [Not Recovered/Not Resolved]
  - Off label use [Unknown]
  - Product administration error [Unknown]
  - Product dispensing error [Unknown]
  - Incorrect dose administered [Unknown]
  - Insurance issue [Unknown]
